FAERS Safety Report 5240431-3 (Version None)
Quarter: 2007Q1

REPORT INFORMATION
  Report Type: 
  Country: None (occurrence: None)
  Receive Date: 20070219
  Receipt Date: 20070205
  Transmission Date: 20070707
  Serious: Yes (Hospitalization)
  Sender: FDA-Public Use
  Company Number: PHBS2007CZ01402

PATIENT
  Age: 14 Year
  Sex: Male

DRUGS (3)
  1. HUMAN GROWTH HORMONE, RECOMBINANT [Concomitant]
  2. METHYLPHENIDATE [Suspect]
     Indication: PSYCHOMOTOR HYPERACTIVITY
     Route: 065
  3. OLANZAPINE [Suspect]

REACTIONS (4)
  - ERECTION INCREASED [None]
  - PENILE PAIN [None]
  - PERINEAL PAIN [None]
  - PRIAPISM [None]
